FAERS Safety Report 4864793-1 (Version None)
Quarter: 2005Q4

REPORT INFORMATION
  Report Type: 
  Country: None (occurrence: None)
  Receive Date: 20051222
  Receipt Date: 20051214
  Transmission Date: 20060501
  Serious: Yes (Hospitalization)
  Sender: FDA-Public Use
  Company Number: FR-MERCK-0512FRA00066

PATIENT
  Age: 56 Year
  Sex: Male

DRUGS (4)
  1. PRIMAXIN [Suspect]
     Indication: CELLULITIS
     Route: 042
     Dates: start: 20050906, end: 20050910
  2. AMOXICILLIN AND CLAVULANATE POTASSIUM [Suspect]
     Indication: CELLULITIS
     Route: 048
     Dates: start: 20050830, end: 20050905
  3. CLAVULANATE POTASSIUM AND TICARCILLIN DISODIUM [Suspect]
     Indication: CELLULITIS
     Route: 042
     Dates: start: 20050911, end: 20050924
  4. CIPROFLOXACIN [Suspect]
     Indication: CELLULITIS
     Route: 048
     Dates: start: 20050925, end: 20051007

REACTIONS (1)
  - HEPATITIS CHOLESTATIC [None]
